FAERS Safety Report 7874541 (Version 4)
Quarter: 2014Q1

REPORT INFORMATION
  Report Type: Spontaneous
  Country: DK (occurrence: DK)
  Receive Date: 20110328
  Receipt Date: 20140225
  Transmission Date: 20141002
  Serious: Yes (Other)
  Sender: FDA-Public Use
  Company Number: GXKR2011DK01212

PATIENT
  Age: 49 Year
  Sex: Male
  Weight: 85 kg

DRUGS (4)
  1. LAMOTRIGINE [Suspect]
     Indication: EPILEPSY
     Dosage: 700 MG/DAY
     Dates: start: 2005, end: 2010
  2. LAMOTRIGINE [Suspect]
     Dosage: 100 MG, UNK
     Dates: start: 2005
  3. LAMOTRIGINE [Suspect]
     Dosage: 150+0+100 MG DAILY
     Dates: start: 20091214
  4. PLENDIL [Concomitant]
     Indication: HYPERTENSION
     Dates: start: 1994

REACTIONS (5)
  - Chronic obstructive pulmonary disease [Recovered/Resolved]
  - Dyspnoea [Unknown]
  - Lethargy [Unknown]
  - Diarrhoea [Unknown]
  - Somnolence [Unknown]
